FAERS Safety Report 6534420-6 (Version None)
Quarter: 2010Q1

REPORT INFORMATION
  Report Type: 
  Country: None (occurrence: None)
  Receive Date: 20100112
  Receipt Date: 20091207
  Transmission Date: 20100710
  Serious: Yes (Hospitalization, Other)
  Sender: FDA-Public Use
  Company Number: GB-SANOFI-AVENTIS-2009SA007863

PATIENT
  Age: 64 Year

DRUGS (10)
  1. OXALIPLATIN [Suspect]
     Indication: COLON CANCER
     Route: 042
     Dates: start: 20071121, end: 20071121
  2. OXALIPLATIN [Suspect]
     Route: 042
     Dates: start: 20080129, end: 20080129
  3. CETUXIMAB [Suspect]
     Indication: COLON CANCER
     Route: 042
     Dates: start: 20071121, end: 20071121
  4. CETUXIMAB [Suspect]
     Route: 042
     Dates: start: 20080129, end: 20080129
  5. FLUOROURACIL [Suspect]
     Indication: COLON CANCER
     Route: 042
     Dates: start: 20071121, end: 20071122
  6. FLUOROURACIL [Suspect]
     Route: 042
     Dates: start: 20080129, end: 20080130
  7. FOLINIC ACID [Suspect]
     Indication: COLON CANCER
     Route: 042
     Dates: start: 20071121, end: 20071122
  8. FOLINIC ACID [Suspect]
     Route: 042
     Dates: start: 20080129, end: 20080130
  9. OMEPRAZOLE [Concomitant]
  10. PARACETAMOL [Concomitant]

REACTIONS (2)
  - MOOD ALTERED [None]
  - TRANSIENT ISCHAEMIC ATTACK [None]
